FAERS Safety Report 9711430 (Version 1)
Quarter: 2013Q4

REPORT INFORMATION
  Report Type: Spontaneous
  Country: US (occurrence: US)
  Receive Date: 20131126
  Receipt Date: 20131126
  Transmission Date: 20140711
  Serious: No
  Sender: FDA-Public Use
  Company Number: US-BRISTOL-MYERS SQUIBB COMPANY-19397942

PATIENT
  Age: 60 Year
  Sex: Male
  Weight: 156.46 kg

DRUGS (12)
  1. BYETTA PEN DISPOSABLE [Suspect]
     Route: 058
  2. GLUCOSAMINE [Concomitant]
  3. POTASSIUM [Concomitant]
  4. LYRICA [Concomitant]
  5. GLYBURIDE [Concomitant]
  6. WARFARIN [Concomitant]
  7. DICLOFENAC SODIUM [Concomitant]
  8. TRIAMTERENE [Concomitant]
  9. LEVOTHYROXINE [Concomitant]
  10. PIOGLITAZONE HCL [Concomitant]
  11. FUROSEMIDE [Concomitant]
  12. AVODART [Concomitant]

REACTIONS (4)
  - Somnolence [Unknown]
  - Insomnia [Unknown]
  - Product quality issue [Unknown]
  - Drug dose omission [Unknown]
